FAERS Safety Report 10021371 (Version 1)
Quarter: 2014Q1

REPORT INFORMATION
  Report Type: Spontaneous
  Country: US (occurrence: None)
  Receive Date: 20140318
  Receipt Date: 20140318
  Transmission Date: 20141002
  Serious: No
  Sender: FDA-Public Use
  Company Number: None

PATIENT
  Age: 54 Year
  Sex: Female

DRUGS (1)
  1. DULOXETINE [Suspect]
     Route: 048
     Dates: start: 20140309, end: 20140314

REACTIONS (4)
  - Nausea [None]
  - Nervousness [None]
  - Feeling jittery [None]
  - Product substitution issue [None]
